FAERS Safety Report 6303310-6 (Version None)
Quarter: 2009Q3

REPORT INFORMATION
  Report Type: 
  Country: None (occurrence: None)
  Receive Date: 20090810
  Receipt Date: 20090427
  Transmission Date: 20100115
  Serious: No
  Sender: FDA-Public Use
  Company Number: A0780771A

PATIENT
  Age: 38 Year
  Sex: Female

DRUGS (4)
  1. TREXIMET [Suspect]
     Indication: MIGRAINE
     Dosage: 1TAB AS REQUIRED
     Route: 048
     Dates: start: 20080101
  2. PAROXETINE [Concomitant]
  3. DAILY VITAMIN [Concomitant]
  4. APRI [Concomitant]

REACTIONS (2)
  - HYPERAESTHESIA [None]
  - PAIN [None]
